FAERS Safety Report 25589833 (Version 1)
Quarter: 2025Q3

REPORT INFORMATION
  Report Type: Report from Study
  Country: CA (occurrence: CA)
  Receive Date: 20250722
  Receipt Date: 20250722
  Transmission Date: 20251021
  Serious: Yes (Other)
  Sender: BIOCON
  Company Number: CA-MIMS-BCONMC-16023

PATIENT

DRUGS (1)
  1. HULIO [Suspect]
     Active Substance: ADALIMUMAB-FKJP
     Indication: Product used for unknown indication
     Route: 058
     Dates: start: 20231218

REACTIONS (3)
  - Sjogren^s syndrome [Unknown]
  - Dry eye [Unknown]
  - Arthralgia [Unknown]
